FAERS Safety Report 8239690 (Version 3)
Quarter: 2012Q4

REPORT INFORMATION
  Report Type: 
  Country: US (occurrence: US)
  Receive Date: 20111110
  Receipt Date: 20121002
  Transmission Date: 20130627
  Serious: No
  Sender: FDA-Public Use
  Company Number: US-ASTRAZENECA-2011SE32038

PATIENT
  Age: 44 Year
  Sex: Female

DRUGS (2)
  1. NEXIUM [Suspect]
     Route: 048
  2. ZESTRIL [Suspect]
     Route: 048

REACTIONS (3)
  - Cough [Unknown]
  - Nasopharyngitis [Unknown]
  - Drug ineffective [Unknown]
